FAERS Safety Report 20196348 (Version 2)
Quarter: 2022Q4

REPORT INFORMATION
  Report Type: Spontaneous
  Country: CH (occurrence: CH)
  Receive Date: 20211216
  Receipt Date: 20221018
  Transmission Date: 20230112
  Serious: Yes (Hospitalization)
  Sender: FDA-Public Use
  Company Number: None

PATIENT
  Age: 13 Year
  Sex: Male

DRUGS (8)
  1. STRATTERA [Suspect]
     Active Substance: ATOMOXETINE HYDROCHLORIDE
     Indication: Product used for unknown indication
     Dosage: 40 MG, DAILY
     Route: 048
     Dates: end: 20211124
  2. BETAINE [Concomitant]
     Active Substance: BETAINE
     Indication: Product used for unknown indication
     Dosage: UNK, UNKNOWN
     Route: 048
  3. MELATONIN [Concomitant]
     Active Substance: MELATONIN
     Indication: Product used for unknown indication
     Dosage: UNK, UNKNOWN
     Route: 048
  4. CYANOKIT [Concomitant]
     Active Substance: HYDROXOCOBALAMIN
     Indication: Product used for unknown indication
     Dosage: 2.5 G, DAILY
     Route: 058
  5. INSULIN PORK\INSULIN PURIFIED PORK [Concomitant]
     Active Substance: INSULIN PORK\INSULIN PURIFIED PORK
     Indication: Product used for unknown indication
     Dosage: UNK UNK, UNKNOWN
     Route: 065
  6. ATARAX [Concomitant]
     Active Substance: HYDROXYZINE HYDROCHLORIDE
     Indication: Product used for unknown indication
     Dosage: UNK UNK, PRN
     Route: 048
  7. DAFALGAN [Concomitant]
     Active Substance: ACETAMINOPHEN
     Indication: Product used for unknown indication
     Dosage: UNK, PRN
     Route: 048
  8. LISDEXAMFETAMINE DIMESYLATE [Concomitant]
     Active Substance: LISDEXAMFETAMINE DIMESYLATE
     Indication: Product used for unknown indication
     Dosage: 30 MG, DAILY
     Route: 065
     Dates: start: 20211210

REACTIONS (13)
  - Bipolar disorder [Recovered/Resolved]
  - Psychomotor hyperactivity [Recovered/Resolved]
  - Disorganised speech [Recovered/Resolved]
  - Hyposomnia [Recovered/Resolved]
  - Persecutory delusion [Recovered/Resolved]
  - Psychotic disorder [Recovered/Resolved]
  - Aggression [Recovered/Resolved]
  - Hallucinations, mixed [Recovered/Resolved]
  - Headache [Recovered/Resolved]
  - Abdominal pain [Recovered/Resolved]
  - Nausea [Recovered/Resolved]
  - Pruritus [Recovered/Resolved]
  - Scratch [Unknown]

NARRATIVE: CASE EVENT DATE: 20211101
